FAERS Safety Report 9727391 (Version 4)
Quarter: 2020Q3

REPORT INFORMATION
  Report Type: Report from Study
  Country: GB (occurrence: GB)
  Receive Date: 20131203
  Receipt Date: 20140117
  Transmission Date: 20201104
  Serious: Yes (Death, Hospitalization)
  Sender: FDA-Public Use
  Company Number: GB-JNJFOC-20130808760

PATIENT
  Age: 71 Year
  Sex: Male
  Weight: 64 kg

DRUGS (18)
  1. SIMVASTATIN. [Concomitant]
     Active Substance: SIMVASTATIN
     Indication: ANGINA PECTORIS
     Dosage: AT BEDTIME
     Route: 048
     Dates: start: 19941109
  2. PERINDOPRIL [Concomitant]
     Active Substance: PERINDOPRIL
     Indication: CARDIAC FAILURE
     Route: 048
     Dates: start: 19970606
  3. CAPHOSOL [Concomitant]
     Indication: MOUTH ULCERATION
     Dates: start: 20130704
  4. IBRUTINIB [Suspect]
     Active Substance: IBRUTINIB
     Indication: CHRONIC LYMPHOCYTIC LEUKAEMIA
     Route: 048
     Dates: start: 20130523, end: 20130709
  5. PANTOPRAZOLE [Concomitant]
     Active Substance: PANTOPRAZOLE
     Indication: ANGINA PECTORIS
     Route: 048
     Dates: start: 20130805
  6. METFORMIN [Concomitant]
     Active Substance: METFORMIN HYDROCHLORIDE
     Indication: DIABETES MELLITUS
     Route: 048
     Dates: start: 20120822, end: 20130821
  7. NYTOL [Concomitant]
     Active Substance: DIPHENHYDRAMINE HYDROCHLORIDE
     Indication: INSOMNIA
     Route: 048
     Dates: start: 20130524
  8. MELOXICAM. [Concomitant]
     Active Substance: MELOXICAM
     Indication: GOUT
     Route: 048
     Dates: start: 20110720
  9. ISOSORBIDE MONONITRATE. [Concomitant]
     Active Substance: ISOSORBIDE MONONITRATE
     Indication: MYOCARDIAL ISCHAEMIA
     Dosage: EVERY AM
     Route: 048
     Dates: start: 19940901
  10. ACETYLSALICYLIC ACID [Concomitant]
     Active Substance: ASPIRIN
     Indication: MYOCARDIAL ISCHAEMIA
     Dosage: Q AM
     Route: 048
     Dates: start: 19940711
  11. ALLOPURINOL. [Concomitant]
     Active Substance: ALLOPURINOL
     Indication: GOUT
     Route: 048
     Dates: start: 20130119, end: 20130808
  12. ACYCLOVIR. [Concomitant]
     Active Substance: ACYCLOVIR
     Dates: start: 201304
  13. NYSTATIN. [Concomitant]
     Active Substance: NYSTATIN
     Indication: MOUTH ULCERATION
     Route: 048
     Dates: start: 20130704, end: 20130715
  14. IBRUTINIB [Suspect]
     Active Substance: IBRUTINIB
     Indication: CHRONIC LYMPHOCYTIC LEUKAEMIA
     Route: 048
     Dates: start: 20130719, end: 20130808
  15. BENZYDAMINE HYDROCHLORIDE [Concomitant]
     Active Substance: BENZYDAMINE HYDROCHLORIDE
     Indication: ULCER
     Route: 048
     Dates: start: 20130704
  16. GELCLAIR [Concomitant]
     Indication: ULCER
     Route: 048
     Dates: start: 20130717
  17. AMOXYCILLIN [Concomitant]
     Active Substance: AMOXICILLIN
     Indication: MOUTH ULCERATION
     Route: 048
     Dates: start: 20130709, end: 20130715
  18. AMOXYCILLIN AND CLAVULANATE [Concomitant]
     Indication: ULCER
     Route: 048
     Dates: start: 20130717, end: 20130723

REACTIONS (3)
  - Sepsis [Fatal]
  - Stevens-Johnson syndrome [Not Recovered/Not Resolved]
  - Pneumonia [Recovered/Resolved]

NARRATIVE: CASE EVENT DATE: 20130812
